FAERS Safety Report 4632111-X (Version None)
Quarter: 2005Q2

REPORT INFORMATION
  Report Type: 
  Country: None (occurrence: None)
  Receive Date: 20050411
  Receipt Date: 20050401
  Transmission Date: 20051028
  Serious: Yes (Hospitalization, Other)
  Sender: FDA-Public Use
  Company Number: CA-AMGEN-US124435

PATIENT
  Sex: Male
  Weight: 101 kg

DRUGS (10)
  1. ARANESP [Suspect]
     Indication: RENAL FAILURE CHRONIC
     Route: 058
     Dates: start: 20041030, end: 20050322
  2. RIBAVIRIN [Suspect]
     Dates: start: 20050124
  3. PEGINTERFERON ALFA-2A [Suspect]
     Dates: start: 20050124
  4. MONOPRIL [Concomitant]
     Dates: start: 20040119
  5. METOPROLOL TARTRATE [Concomitant]
     Dates: start: 20040119
  6. CALCIUM CARBONATE [Concomitant]
     Dates: start: 20040430
  7. FERROUS GLUCONATE [Concomitant]
     Dates: start: 20040422
  8. VITAMIN B COMPLEX CAP [Concomitant]
     Dates: start: 20040420
  9. VITAMIN B-12 [Concomitant]
     Dates: start: 20040420
  10. LASIX [Concomitant]
     Dates: start: 20050305

REACTIONS (2)
  - ANAEMIA [None]
  - BONE MARROW DEPRESSION [None]
